FAERS Safety Report 21000707 (Version 1)
Quarter: 2022Q2

REPORT INFORMATION
  Report Type: Spontaneous
  Country: CH (occurrence: CH)
  Receive Date: 20220623
  Receipt Date: 20220623
  Transmission Date: 20220721
  Serious: Yes (Hospitalization, Other)
  Sender: FDA-Public Use
  Company Number: CH-GILEAD-2022-0586837

PATIENT
  Sex: Male

DRUGS (10)
  1. DESCOVY [Suspect]
     Active Substance: EMTRICITABINE\TENOFOVIR ALAFENAMIDE FUMARATE
     Indication: HIV infection
     Dosage: 200/25MG
     Route: 065
     Dates: start: 20200522
  2. DESCOVY [Suspect]
     Active Substance: EMTRICITABINE\TENOFOVIR ALAFENAMIDE FUMARATE
     Dosage: 200/10MG
     Route: 065
     Dates: start: 20200923
  3. TIVICAY [Concomitant]
     Active Substance: DOLUTEGRAVIR SODIUM
     Dosage: 1X50 MG
     Dates: start: 20200522
  4. TIVICAY [Concomitant]
     Active Substance: DOLUTEGRAVIR SODIUM
     Dosage: 2X50 MG
     Dates: start: 20200710
  5. TIVICAY [Concomitant]
     Active Substance: DOLUTEGRAVIR SODIUM
     Dosage: 2X50 MG
     Dates: start: 20200723
  6. BACTRIM [Concomitant]
     Active Substance: SULFAMETHOXAZOLE\TRIMETHOPRIM
     Dosage: UNK
     Dates: start: 20200522
  7. PREZISTA [Concomitant]
     Active Substance: DARUNAVIR ETHANOLATE
     Dosage: 800 MG
  8. PREZISTA [Concomitant]
     Active Substance: DARUNAVIR ETHANOLATE
     Dosage: 2X600MG
     Dates: start: 20200923
  9. NORVIR [Concomitant]
     Active Substance: RITONAVIR
     Dosage: 100 MG
  10. NORVIR [Concomitant]
     Active Substance: RITONAVIR
     Dosage: 2X100MG
     Dates: start: 20200923

REACTIONS (9)
  - Haemophagocytic lymphohistiocytosis [Unknown]
  - Pancytopenia [Unknown]
  - Pyrexia [Unknown]
  - Cough [Unknown]
  - Serum ferritin increased [Unknown]
  - Splenomegaly [Unknown]
  - Hypertriglyceridaemia [Unknown]
  - Headache [Unknown]
  - Drug ineffective [Unknown]
